FAERS Safety Report 15922507 (Version 1)
Quarter: 2019Q1

REPORT INFORMATION
  Report Type: Spontaneous
  Country: US (occurrence: US)
  Receive Date: 20190205
  Receipt Date: 20190205
  Transmission Date: 20190417
  Serious: Yes (Hospitalization, Other)
  Sender: FDA-Public Use
  Company Number: None

PATIENT
  Age: 14 Year
  Sex: Female
  Weight: 58.8 kg

DRUGS (12)
  1. BRIDION [Suspect]
     Active Substance: SUGAMMADEX
     Indication: ANAESTHESIA REVERSAL
     Dosage: ?          OTHER FREQUENCY:ONCE;?
     Route: 040
     Dates: start: 20190129, end: 20190129
  2. MIDAZOLAM [Concomitant]
     Active Substance: MIDAZOLAM HYDROCHLORIDE
     Dates: start: 20190129, end: 20190129
  3. FENTANYL. [Concomitant]
     Active Substance: FENTANYL
     Dates: start: 20190129, end: 20190129
  4. GLYCOPYRROLATE. [Concomitant]
     Active Substance: GLYCOPYRROLATE
     Dates: start: 20190129, end: 20190129
  5. DEXAMETHASONE. [Concomitant]
     Active Substance: DEXAMETHASONE
     Dates: start: 20190129, end: 20190129
  6. OFIRMEV [Concomitant]
     Active Substance: ACETAMINOPHEN
     Dates: start: 20190129, end: 20190129
  7. DIPHENHYDRAMINE. [Concomitant]
     Active Substance: DIPHENHYDRAMINE
     Dates: start: 20190129, end: 20190129
  8. ROCURONIUM [Concomitant]
     Active Substance: ROCURONIUM BROMIDE
     Dates: start: 20190129, end: 20190129
  9. LABETALOL [Concomitant]
     Active Substance: LABETALOL\LABETALOL HYDROCHLORIDE
     Dates: start: 20190129, end: 20190129
  10. LIDOCAINE 1% [Concomitant]
     Active Substance: LIDOCAINE
     Dates: start: 20190129, end: 20190129
  11. PROPOFOL. [Concomitant]
     Active Substance: PROPOFOL
     Dates: start: 20190129, end: 20190129
  12. KETOROLAC [Concomitant]
     Active Substance: KETOROLAC\KETOROLAC TROMETHAMINE
     Dates: start: 20190129, end: 20190129

REACTIONS (6)
  - Arrhythmia [None]
  - Extrasystoles [None]
  - Ventricular tachycardia [None]
  - Swelling face [None]
  - Lung infiltration [None]
  - Urticaria [None]

NARRATIVE: CASE EVENT DATE: 20190129
